FAERS Safety Report 5429484-7 (Version None)
Quarter: 2007Q3

REPORT INFORMATION
  Report Type: 
  Country: None (occurrence: None)
  Receive Date: 20070829
  Receipt Date: 20070824
  Transmission Date: 20080115
  Serious: Yes (Other)
  Sender: FDA-Public Use
  Company Number: B0482480A

PATIENT
  Age: 75 Year
  Sex: Female

DRUGS (4)
  1. VALTREX [Suspect]
     Indication: HERPES ZOSTER
     Route: 048
     Dates: start: 20070731, end: 20070802
  2. MUCOSTA [Concomitant]
     Indication: GASTRITIS
     Dosage: 3TAB PER DAY
     Route: 048
     Dates: start: 20070731
  3. SESDEN [Concomitant]
     Dosage: 3CAP PER DAY
     Route: 048
     Dates: start: 20070727, end: 20070731
  4. FLOMOX [Concomitant]
     Dosage: 3TAB PER DAY
     Route: 048
     Dates: start: 20070731

REACTIONS (3)
  - DIZZINESS [None]
  - GAIT DISTURBANCE [None]
  - HALLUCINATION [None]
